FAERS Safety Report 23933982 (Version 1)
Quarter: 2024Q2

REPORT INFORMATION
  Report Type: Spontaneous
  Country: CN (occurrence: CN)
  Receive Date: 20240603
  Receipt Date: 20240603
  Transmission Date: 20240715
  Serious: Yes (Hospitalization, Other)
  Sender: FDA-Public Use
  Company Number: CN-PFIZER INC-PV202400071390

PATIENT
  Age: 45 Year
  Sex: Female
  Weight: 70 kg

DRUGS (2)
  1. METHYLPREDNISOLONE SODIUM SUCCINATE [Suspect]
     Active Substance: METHYLPREDNISOLONE SODIUM SUCCINATE
     Indication: Antiinflammatory therapy
     Dosage: 40.000 MG, 2X/DAY
     Route: 041
     Dates: start: 20240510, end: 20240520
  2. ESOMEPRAZOLE SODIUM [Concomitant]
     Active Substance: ESOMEPRAZOLE SODIUM
     Indication: Gastric pH decreased
     Dosage: 40.000 MG, 1X/DAY
     Route: 041
     Dates: start: 20240510, end: 20240522

REACTIONS (2)
  - Blood glucose increased [Recovered/Resolved]
  - Ammonia increased [Unknown]

NARRATIVE: CASE EVENT DATE: 20240518
